FAERS Safety Report 6670798-0 (Version None)
Quarter: 2010Q2

REPORT INFORMATION
  Report Type: 
  Country: None (occurrence: None)
  Receive Date: 20100407
  Receipt Date: 20100322
  Transmission Date: 20101027
  Serious: No
  Sender: FDA-Public Use
  Company Number: US-B.I. PHARMACEUTICALS,INC./RIDGEFIELD-2010-BP-03363BP

PATIENT
  Sex: Female

DRUGS (4)
  1. SPIRIVA [Suspect]
     Indication: EMPHYSEMA
     Dosage: 18 MCG
     Route: 055
     Dates: start: 20070101, end: 20100320
  2. SPIRIVA [Suspect]
     Indication: ASTHMA
  3. MEDICATION NOT FURTHER SPECIFIED [Concomitant]
     Indication: HYPERTENSION
  4. MEDICATION NOT FURTHER SPECIFIED [Concomitant]
     Indication: BLOOD CHOLESTEROL INCREASED

REACTIONS (1)
  - WHEEZING [None]
